FAERS Safety Report 20954190 (Version 3)
Quarter: 2022Q3

REPORT INFORMATION
  Report Type: Spontaneous
  Country: US (occurrence: US)
  Receive Date: 20220614
  Receipt Date: 20220921
  Transmission Date: 20221026
  Serious: Yes (Other)
  Sender: FDA-Public Use
  Company Number: US-Calliditas-2022CAL00133

PATIENT
  Age: 48 Year
  Sex: Female

DRUGS (1)
  1. TARPEYO [Suspect]
     Active Substance: BUDESONIDE
     Indication: IgA nephropathy
     Dosage: 8 MG (4 MG CAPSULES) ONCE DAILY
     Route: 050
     Dates: start: 20220305, end: 20220909

REACTIONS (9)
  - Serum ferritin decreased [Unknown]
  - Rash [Recovering/Resolving]
  - Chronic kidney disease [Not Recovered/Not Resolved]
  - Prescribed underdose [Unknown]
  - Product administration interrupted [Unknown]
  - Cataract [Unknown]
  - Dry eye [Unknown]
  - Vision blurred [Unknown]
  - Glomerular filtration rate decreased [Unknown]

NARRATIVE: CASE EVENT DATE: 20210101
